FAERS Safety Report 8235065-2 (Version None)
Quarter: 2012Q1

REPORT INFORMATION
  Report Type: 
  Country: None (occurrence: None)
  Receive Date: 20120326
  Receipt Date: 20120320
  Transmission Date: 20120608
  Serious: Yes (Other)
  Sender: FDA-Public Use
  Company Number: FR-GLAXOSMITHKLINE-B0789869A

PATIENT
  Sex: Male

DRUGS (1)
  1. REQUIP [Suspect]
     Indication: PARKINSON'S DISEASE
     Dosage: 50MG PER DAY
     Route: 048
     Dates: start: 20080601

REACTIONS (5)
  - BULIMIA NERVOSA [None]
  - IMPULSE-CONTROL DISORDER [None]
  - HYPERSEXUALITY [None]
  - OVERDOSE [None]
  - STEREOTYPY [None]
